FAERS Safety Report 25227834 (Version 2)
Quarter: 2025Q2

REPORT INFORMATION
  Report Type: Spontaneous
  Country: US (occurrence: US)
  Receive Date: 20250423
  Receipt Date: 20250602
  Transmission Date: 20250716
  Serious: Yes (Life-Threatening, Hospitalization, Other)
  Sender: GLAXOSMITHKLINE
  Company Number: US-GSK-US2025046042

PATIENT

DRUGS (2)
  1. JEMPERLI [Suspect]
     Active Substance: DOSTARLIMAB-GXLY
     Indication: Product used for unknown indication
     Dates: start: 20231204, end: 20240207
  2. JEMPERLI [Suspect]
     Active Substance: DOSTARLIMAB-GXLY
     Dates: start: 20240228, end: 20240627

REACTIONS (19)
  - Stevens-Johnson syndrome [Recovered/Resolved]
  - Hospitalisation [Unknown]
  - Dehydration [Not Recovered/Not Resolved]
  - Encephalitis [Recovered/Resolved]
  - Hallucination [Recovered/Resolved]
  - Cardiac failure [Recovered/Resolved]
  - Pneumoperitoneum [Recovering/Resolving]
  - Intestinal ischaemia [Recovering/Resolving]
  - Urinary tract infection [Not Recovered/Not Resolved]
  - Fall [Unknown]
  - Bedridden [Not Recovered/Not Resolved]
  - Asthenia [Not Recovered/Not Resolved]
  - Decreased appetite [Not Recovered/Not Resolved]
  - Gait inability [Not Recovered/Not Resolved]
  - Hypotension [Recovered/Resolved]
  - Sleep disorder [Unknown]
  - Pain [Unknown]
  - Diarrhoea [Unknown]
  - Feeding disorder [Unknown]

NARRATIVE: CASE EVENT DATE: 20230221
